FAERS Safety Report 4896952-6 (Version None)
Quarter: 2006Q1

REPORT INFORMATION
  Report Type: 
  Country: None (occurrence: None)
  Receive Date: 20060127
  Receipt Date: 20060112
  Transmission Date: 20060701
  Serious: Yes (Other)
  Sender: FDA-Public Use
  Company Number: JP-2006-000489

PATIENT
  Age: 74 Year
  Sex: Male

DRUGS (6)
  1. PROSCOPE 300 (IOPROMIDE)SOLUTION [Suspect]
     Indication: COMPUTERISED TOMOGRAM
     Dosage: SEE IMAGE
     Route: 040
     Dates: start: 20041014, end: 20041014
  2. PROSCOPE 300 (IOPROMIDE)SOLUTION [Suspect]
     Indication: COMPUTERISED TOMOGRAM
     Dosage: SEE IMAGE
     Route: 040
     Dates: start: 20050908, end: 20050908
  3. SEVEN EP (ENZYMES NOS) [Concomitant]
  4. MAGNESIUM OXIDE (MAGNESIUM OXIDE) [Concomitant]
  5. SEREVENT [Concomitant]
  6. ATROVENT [Concomitant]

REACTIONS (6)
  - ANAPHYLACTIC SHOCK [None]
  - ASPARTATE AMINOTRANSFERASE INCREASED [None]
  - BLOOD ALKALINE PHOSPHATASE INCREASED [None]
  - BLOOD CHOLESTEROL INCREASED [None]
  - BLOOD POTASSIUM INCREASED [None]
  - PLATELET COUNT DECREASED [None]
